FAERS Safety Report 13991133 (Version 1)
Quarter: 2017Q3

REPORT INFORMATION
  Report Type: Spontaneous
  Country: US (occurrence: US)
  Receive Date: 20170920
  Receipt Date: 20170920
  Transmission Date: 20171128
  Serious: Yes (Death, Life-Threatening, Hospitalization)
  Sender: FDA-Public Use
  Company Number: None

PATIENT
  Age: 48 Year
  Sex: Female
  Weight: 79 kg

DRUGS (1)
  1. BLEOMYCIN [Suspect]
     Active Substance: BLEOMYCIN SULFATE
     Indication: HODGKIN^S DISEASE
     Dosage: ?          OTHER FREQUENCY:MONTHLY;?
     Route: 042

REACTIONS (4)
  - Respiratory failure [None]
  - Chest pain [None]
  - Acute respiratory distress syndrome [None]
  - Pulmonary toxicity [None]

NARRATIVE: CASE EVENT DATE: 20170815
